FAERS Safety Report 6422995-7 (Version None)
Quarter: 2009Q4

REPORT INFORMATION
  Report Type: 
  Country: None (occurrence: None)
  Receive Date: 20091102
  Receipt Date: 20091023
  Transmission Date: 20100525
  Serious: Yes (Other)
  Sender: FDA-Public Use
  Company Number: US-BAYER-200834996NA

PATIENT
  Age: 31 Year
  Sex: Female
  Weight: 76 kg

DRUGS (1)
  1. MAGNEVIST [Suspect]
     Indication: NUCLEAR MAGNETIC RESONANCE IMAGING BRAIN
     Dosage: TOTAL DAILY DOSE: 16 ML
     Route: 042
     Dates: start: 20080926, end: 20080926

REACTIONS (4)
  - HYPERTENSION [None]
  - NAUSEA [None]
  - PRE-ECLAMPSIA [None]
  - VOMITING [None]
